FAERS Safety Report 5248615-5 (Version None)
Quarter: 2007Q1

REPORT INFORMATION
  Report Type: 
  Country: None (occurrence: None)
  Receive Date: 20070222
  Receipt Date: 20070207
  Transmission Date: 20070707
  Serious: Yes (Hospitalization)
  Sender: FDA-Public Use
  Company Number: TRP_0786_2006

PATIENT
  Age: 61 Year
  Sex: Male
  Weight: 72 kg

DRUGS (5)
  1. RIBASPHERE [Suspect]
     Indication: HEPATITIS C
     Dosage: VAR BID PO
     Route: 048
     Dates: start: 20060305, end: 20060319
  2. PEG-INTRON [Suspect]
     Indication: HEPATITIS C
     Dosage: 0.4 ML QWK SC
     Route: 058
     Dates: start: 20060305, end: 20060319
  3. CELLCEPT [Concomitant]
  4. LISINOPRIL [Concomitant]
  5. SIROLIMUS [Concomitant]

REACTIONS (12)
  - ABASIA [None]
  - HAEMOGLOBIN DECREASED [None]
  - HYPERTENSION [None]
  - INFLUENZA LIKE ILLNESS [None]
  - INSOMNIA [None]
  - NAUSEA [None]
  - NO THERAPEUTIC RESPONSE [None]
  - PLATELET COUNT DECREASED [None]
  - PNEUMONIA [None]
  - RED BLOOD CELL COUNT DECREASED [None]
  - RESPIRATORY DISORDER [None]
  - WHITE BLOOD CELL COUNT DECREASED [None]
